FAERS Safety Report 8256173-6 (Version None)
Quarter: 2012Q2

REPORT INFORMATION
  Report Type: 
  Country: None (occurrence: None)
  Receive Date: 20120403
  Receipt Date: 20111024
  Transmission Date: 20120825
  Serious: Yes (Hospitalization)
  Sender: FDA-Public Use
  Company Number: DE-PFIZER INC-2012079103

PATIENT
  Age: 63 Year
  Sex: Female

DRUGS (10)
  1. DESMOPRESSIN [Concomitant]
     Indication: BLOOD ANTIDIURETIC HORMONE DECREASED
     Dosage: 20 UG, 1X/DAY
     Dates: start: 19910101
  2. LEVOTHYROXINE [Concomitant]
     Indication: BLOOD THYROID STIMULATING HORMONE DECREASED
     Dosage: 100 UG, 1X/DAY
     Dates: start: 19910101
  3. HYDROCORTISONE [Concomitant]
     Indication: BLOOD CORTICOTROPHIN DECREASED
     Dosage: 30 MG, 1X/DAY
     Dates: start: 19910101
  4. ZOPLICONE [Concomitant]
     Dosage: 3.75 MG, 1X/DAY
     Dates: start: 20050907
  5. CONJUGATED ESTROGENS [Concomitant]
     Indication: BLOOD FOLLICLE STIMULATING HORMONE DECREASED
  6. SOMATROPIN [Suspect]
     Indication: HYPOPITUITARISM
     Dosage: 0.4 MG, 7 INJECTION/WEEK SINCE 01JAN2011
     Dates: start: 19980118
  7. NATEGLINIDE [Concomitant]
     Indication: DIABETES MELLITUS
     Dosage: 120 MG, 3X/DAY
     Dates: start: 20050907
  8. CONJUGATED ESTROGENS [Concomitant]
     Indication: LUTEINISING HORMONE DEFICIENCY
     Dosage: 0.6 MG, 1X/DAY
     Dates: start: 19910101
  9. METFORMIN [Concomitant]
     Indication: DIABETES MELLITUS
     Dosage: 850 MG, 3X/DAY
     Dates: start: 20021015
  10. VENLAFAXINE HYDROCHLORIDE [Concomitant]
     Dosage: 75 MG, 3X/DAY

REACTIONS (1)
  - DEPRESSION [None]
